FAERS Safety Report 7540324-2 (Version None)
Quarter: 2011Q2

REPORT INFORMATION
  Report Type: 
  Country: None (occurrence: None)
  Receive Date: 20110610
  Receipt Date: 20110609
  Transmission Date: 20111010
  Serious: Yes (Hospitalization)
  Sender: FDA-Public Use
  Company Number: FR-PFIZER INC-2011127106

PATIENT
  Sex: Female

DRUGS (1)
  1. VARENICLINE TARTRATE [Suspect]
     Dosage: UNK
     Dates: start: 20100527, end: 20100101

REACTIONS (5)
  - BIPOLAR DISORDER [None]
  - ANXIETY [None]
  - SLEEP DISORDER [None]
  - AGITATION [None]
  - INSOMNIA [None]
